FAERS Safety Report 10591850 (Version 1)
Quarter: 2014Q4

REPORT INFORMATION
  Report Type: Report from Study
  Country: NL (occurrence: NL)
  Receive Date: 20141119
  Receipt Date: 20141119
  Transmission Date: 20150529
  Serious: Yes (Death, Other)
  Sender: FDA-Public Use
  Company Number: NL-AMGEN-NLDSL2012086740

PATIENT
  Age: 89 Year
  Sex: Female

DRUGS (1)
  1. ARANESP [Suspect]
     Active Substance: DARBEPOETIN ALFA
     Indication: PRODUCT USED FOR UNKNOWN INDICATION
     Dosage: 1 ML (500MCG/ML), Q4WK
     Route: 065
     Dates: start: 20120109, end: 20120827

REACTIONS (5)
  - Leukaemia [Unknown]
  - Death [Fatal]
  - Rectal haemorrhage [Unknown]
  - Back pain [Unknown]
  - Arthralgia [Unknown]
